FAERS Safety Report 5078338-7 (Version None)
Quarter: 2006Q3

REPORT INFORMATION
  Report Type: 
  Country: None (occurrence: None)
  Receive Date: 20060811
  Receipt Date: 20050329
  Transmission Date: 20061208
  Serious: Yes (Hospitalization)
  Sender: FDA-Public Use
  Company Number: US-GLAXOSMITHKLINE-A0555657A

PATIENT
  Age: 17 Year
  Sex: Female

DRUGS (3)
  1. PAXIL [Suspect]
     Indication: PANIC DISORDER
     Dosage: 40MG PER DAY
     Route: 048
     Dates: start: 20001002
  2. KLONOPIN [Concomitant]
  3. STRATTERA [Concomitant]

REACTIONS (7)
  - ANXIETY [None]
  - DEPRESSION [None]
  - DISTRACTIBILITY [None]
  - IRRITABILITY [None]
  - SELF MUTILATION [None]
  - SUICIDAL IDEATION [None]
  - WEIGHT INCREASED [None]
